FAERS Safety Report 15261726 (Version 3)
Quarter: 2018Q3

REPORT INFORMATION
  Report Type: Spontaneous
  Country: US (occurrence: US)
  Receive Date: 20180809
  Receipt Date: 20180920
  Transmission Date: 20181010
  Serious: Yes (Hospitalization, Other)
  Sender: FDA-Public Use
  Company Number: US-BAYER-2018-146972

PATIENT
  Age: 36 Year
  Sex: Female

DRUGS (1)
  1. MIRENA [Suspect]
     Active Substance: LEVONORGESTREL
     Indication: MENORRHAGIA
     Dosage: 20 ?G/H, CONT
     Route: 015
     Dates: start: 20170614

REACTIONS (2)
  - Genital haemorrhage [None]
  - Device dislocation [None]

NARRATIVE: CASE EVENT DATE: 20180602
